FAERS Safety Report 13860773 (Version 1)
Quarter: 2017Q3

REPORT INFORMATION
  Report Type: Not Available
  Country: US (occurrence: US)
  Receive Date: 20170811
  Receipt Date: 20170811
  Transmission Date: 20171127
  Serious: Yes (Other)
  Sender: FDA-Public Use
  Company Number: US-ANIPHARMA-2017-US-008579

PATIENT
  Age: 59 Year
  Sex: Male

DRUGS (1)
  1. VANCOMYCIN HYDROCHLORIDE (NON-SPECIFIC) [Suspect]
     Active Substance: VANCOMYCIN HYDROCHLORIDE

REACTIONS (1)
  - Henoch-Schonlein purpura [Unknown]
